FAERS Safety Report 5202540-4 (Version None)
Quarter: 2007Q1

REPORT INFORMATION
  Report Type: 
  Country: None (occurrence: None)
  Receive Date: 20070109
  Receipt Date: 20070102
  Transmission Date: 20070707
  Serious: Yes (Death, Hospitalization)
  Sender: FDA-Public Use
  Company Number: GB-SANOFI-SYNTHELABO-F01200400888

PATIENT
  Sex: Male

DRUGS (7)
  1. OXALIPLATIN [Suspect]
     Indication: COLON CANCER STAGE III
     Route: 042
  2. LOPERAMIDE HCL [Concomitant]
  3. ACETAMINOPHEN [Concomitant]
  4. PANTOPRAZOLE SODIUM [Concomitant]
  5. CAPECITABINE [Suspect]
     Dosage: TWICE DAILY DAYS 1-14 OF 3 WEEK CYCLE
     Route: 048
     Dates: start: 20040318
  6. CLOPIDOGREL [Concomitant]
  7. VENTOLIN [Concomitant]

REACTIONS (3)
  - ASTHMA [None]
  - LOWER RESPIRATORY TRACT INFECTION [None]
  - PNEUMONIA [None]
